FAERS Safety Report 11825727 (Version 3)
Quarter: 2016Q1

REPORT INFORMATION
  Report Type: Spontaneous
  Country: US (occurrence: US)
  Receive Date: 20151211
  Receipt Date: 20160308
  Transmission Date: 20160525
  Serious: No
  Sender: FDA-Public Use
  Company Number: US-JNJFOC-20150508013

PATIENT
  Sex: Male

DRUGS (11)
  1. IMBRUVICA [Suspect]
     Active Substance: IBRUTINIB
     Indication: MANTLE CELL LYMPHOMA
     Route: 048
     Dates: start: 20150425
  2. GLUCOSAMINE / CHONDROITIN [Concomitant]
  3. IMBRUVICA [Suspect]
     Active Substance: IBRUTINIB
     Indication: LYMPHOMA
     Route: 048
  4. CELEBREX [Concomitant]
     Active Substance: CELECOXIB
  5. LISINOPRIL HCTZ [Concomitant]
     Active Substance: HYDROCHLOROTHIAZIDE\LISINOPRIL
  6. SIMVASTATIN. [Concomitant]
     Active Substance: SIMVASTATIN
  7. ASPIRIN. [Concomitant]
     Active Substance: ASPIRIN
  8. MVI [Concomitant]
     Active Substance: VITAMINS
  9. IMBRUVICA [Suspect]
     Active Substance: IBRUTINIB
     Indication: MANTLE CELL LYMPHOMA
     Route: 048
  10. VITAMIN D3 [Concomitant]
     Active Substance: CHOLECALCIFEROL
  11. IMBRUVICA [Suspect]
     Active Substance: IBRUTINIB
     Indication: LYMPHOMA
     Route: 048
     Dates: start: 20150425

REACTIONS (10)
  - Dry skin [Unknown]
  - Stomatitis [Not Recovered/Not Resolved]
  - Abnormal faeces [Recovering/Resolving]
  - Off label use [Not Recovered/Not Resolved]
  - Dry mouth [Recovering/Resolving]
  - Lip dry [Not Recovered/Not Resolved]
  - Onychoclasis [Unknown]
  - Hypoaesthesia [Not Recovered/Not Resolved]
  - Muscle twitching [Recovered/Resolved]
  - Pain [Recovered/Resolved]

NARRATIVE: CASE EVENT DATE: 2015
